FAERS Safety Report 6348982-5 (Version None)
Quarter: 2009Q3

REPORT INFORMATION
  Report Type: 
  Country: None (occurrence: None)
  Receive Date: 20090911
  Receipt Date: 20090901
  Transmission Date: 20100115
  Serious: Yes (Other)
  Sender: FDA-Public Use
  Company Number: US-AVENTIS-200917792US

PATIENT
  Sex: Female

DRUGS (1)
  1. LANTUS [Suspect]
     Dosage: DOSE: 23 UNITS AM/37 UNITS PM
     Route: 058
     Dates: start: 20050101

REACTIONS (3)
  - FATIGUE [None]
  - HYPOGLYCAEMIC COMA [None]
  - WEIGHT INCREASED [None]
